FAERS Safety Report 12070333 (Version 2)
Quarter: 2016Q1

REPORT INFORMATION
  Report Type: Report from Study
  Country: TR (occurrence: TR)
  Receive Date: 20160211
  Receipt Date: 20160225
  Transmission Date: 20160526
  Serious: Yes (Other)
  Sender: FDA-Public Use
  Company Number: PHHY2015TR092119

PATIENT
  Sex: Male
  Weight: 45 kg

DRUGS (1)
  1. SOMATROPIN [Suspect]
     Active Substance: SOMATROPIN
     Indication: GROWTH HORMONE DEFICIENCY
     Dosage: 1.6 MG, QD
     Route: 058
     Dates: start: 20141226, end: 201601

REACTIONS (2)
  - Road traffic accident [Recovering/Resolving]
  - Muscle contractions involuntary [Unknown]
